FAERS Safety Report 8530031-1 (Version None)
Quarter: 2012Q3

REPORT INFORMATION
  Report Type: 
  Country: None (occurrence: None)
  Receive Date: 20120723
  Receipt Date: 20120717
  Transmission Date: 20120928
  Serious: Yes (Other)
  Sender: FDA-Public Use
  Company Number: PHEH2012US014052

PATIENT
  Sex: Female

DRUGS (5)
  1. VITAMINS NOS [Concomitant]
  2. SABRIL [Concomitant]
  3. LAMICTAL [Concomitant]
  4. TAURINE [Concomitant]
  5. AFINITOR [Suspect]
     Indication: TUBEROUS SCLEROSIS
     Dosage: 2.5 MG, DAILY
     Route: 048
     Dates: start: 20110412

REACTIONS (1)
  - RENAL CYST [None]
